FAERS Safety Report 16112306 (Version 1)
Quarter: 2019Q1

REPORT INFORMATION
  Report Type: Report from Study
  Country: GE (occurrence: GE)
  Receive Date: 20190325
  Receipt Date: 20190325
  Transmission Date: 20190418
  Serious: Yes (Other)
  Sender: FDA-Public Use
  Company Number: GE-ASTELLAS-2019US012341

PATIENT
  Age: 19 Year
  Sex: Female

DRUGS (7)
  1. ATG                                /00575401/ [Concomitant]
     Active Substance: LAPINE T-LYMPHOCYTE IMMUNE GLOBULIN
     Indication: RENAL TRANSPLANT
     Dosage: 1.5 MG/KG, UNKNOWN FREQ. (AT THE TIME OF TRANSPLANT AND DAYS 1, 2, AND 3)
     Route: 042
  2. PREDNISONE. [Concomitant]
     Active Substance: PREDNISONE
     Indication: RENAL TRANSPLANT
     Route: 065
  3. METHYLPREDNISOLONE. [Concomitant]
     Active Substance: METHYLPREDNISOLONE
     Indication: RENAL TRANSPLANT
     Dosage: 500 MG, UNKNOWN FREQ. (AT THE TIME OF TRANSPLANT)
     Route: 042
  4. METHYLPREDNISOLONE. [Concomitant]
     Active Substance: METHYLPREDNISOLONE
     Dosage: 250 MG, UNKNOWN FREQ. (POSTTRANSPLANT DAYS 1)
     Route: 042
  5. METHYLPREDNISOLONE. [Concomitant]
     Active Substance: METHYLPREDNISOLONE
     Dosage: 125 MG, UNKNOWN FREQ. (POSTTRANSPLANT DAYS 2)
     Route: 042
  6. TACROLIMUS. [Suspect]
     Active Substance: TACROLIMUS
     Indication: RENAL TRANSPLANT
     Dosage: 0.05 MG/KG, TWICE DAILY (TITRATED TO GOAL TROUGH LEVELS OF 8-12 NG/ML)
     Route: 065
  7. MYCOPHENOLATE MOFETIL. [Concomitant]
     Active Substance: MYCOPHENOLATE MOFETIL
     Indication: RENAL TRANSPLANT
     Route: 065

REACTIONS (1)
  - Thrombotic microangiopathy [Unknown]
